FAERS Safety Report 7977671-6 (Version None)
Quarter: 2011Q4

REPORT INFORMATION
  Report Type: 
  Country: None (occurrence: None)
  Receive Date: 20111214
  Receipt Date: 20111128
  Transmission Date: 20120403
  Serious: No
  Sender: FDA-Public Use
  Company Number: US-AMGEN-USASP2011062841

PATIENT
  Age: 62 Year
  Sex: Female

DRUGS (2)
  1. ENBREL [Suspect]
     Indication: RHEUMATOID ARTHRITIS
     Dosage: 25 MG, 2 TIMES/WK
     Dates: start: 19980101
  2. TREXALL [Concomitant]
     Dosage: 10 MG, QWK
     Route: 048

REACTIONS (3)
  - NAUSEA [None]
  - SJOGREN'S SYNDROME [None]
  - RHEUMATOID ARTHRITIS [None]
